FAERS Safety Report 9388750 (Version 1)
Quarter: 2013Q3

REPORT INFORMATION
  Report Type: Spontaneous
  Country: FR (occurrence: FR)
  Receive Date: 20130708
  Receipt Date: 20130708
  Transmission Date: 20140515
  Serious: Yes (Hospitalization)
  Sender: FDA-Public Use
  Company Number: FR-GLAXOSMITHKLINE-B0902345A

PATIENT
  Age: 25 Year
  Sex: Female

DRUGS (6)
  1. AUGMENTIN (INJECTION) [Suspect]
     Indication: BACTERIAL INFECTION
     Dosage: 3G PER DAY
     Route: 042
     Dates: start: 20121224, end: 20121225
  2. ONDANSETRON [Suspect]
     Indication: PRODUCT USED FOR UNKNOWN INDICATION
     Dosage: 4MG THREE TIMES PER DAY
     Route: 042
     Dates: start: 20121223, end: 20121227
  3. SPASFON [Suspect]
     Indication: PRODUCT USED FOR UNKNOWN INDICATION
     Dosage: 2UNIT THREE TIMES PER DAY
     Route: 042
     Dates: start: 20121223, end: 20121227
  4. ACUPAN [Suspect]
     Indication: PRODUCT USED FOR UNKNOWN INDICATION
     Dosage: 20MG THREE TIMES PER DAY
     Route: 030
     Dates: start: 20121223, end: 20121224
  5. OFLOXACINE [Concomitant]
     Dosage: 200MG TWICE PER DAY
     Route: 042
     Dates: start: 20121225, end: 20121227
  6. ATARAX [Concomitant]
     Dosage: 25MG TWICE PER DAY
     Route: 048
     Dates: start: 20121226, end: 20121226

REACTIONS (7)
  - Hepatitis cholestatic [Recovered/Resolved]
  - Pruritus [Recovered/Resolved]
  - Eosinophilia [Recovered/Resolved]
  - Hepatomegaly [Unknown]
  - Pelvic fluid collection [Unknown]
  - Rash macular [Recovered/Resolved]
  - Jaundice [Recovered/Resolved]
